FAERS Safety Report 10807928 (Version 1)
Quarter: 2015Q1

REPORT INFORMATION
  Report Type: Report from Study
  Country: US (occurrence: US)
  Receive Date: 20150217
  Receipt Date: 20150217
  Transmission Date: 20150721
  Serious: No
  Sender: FDA-Public Use
  Company Number: US-ABBVIE-14K-163-1256524-00

PATIENT
  Age: 54 Year
  Sex: Female

DRUGS (6)
  1. HUMIRA [Suspect]
     Active Substance: ADALIMUMAB
     Dates: start: 2014
  2. LOMOTIL [Concomitant]
     Active Substance: ATROPINE SULFATE\DIPHENOXYLATE HYDROCHLORIDE
     Indication: PROPHYLAXIS AGAINST DIARRHOEA
     Dosage: BEFORE EACH MEAL
  3. HUMIRA [Suspect]
     Active Substance: ADALIMUMAB
     Indication: CROHN^S DISEASE
     Dosage: DAY ONE
     Dates: start: 201405, end: 201405
  4. HUMIRA [Suspect]
     Active Substance: ADALIMUMAB
     Dosage: DAY 15
     Dates: start: 201405, end: 201405
  5. LIALDA [Concomitant]
     Active Substance: MESALAMINE
     Indication: CROHN^S DISEASE
  6. EFFEXOR [Concomitant]
     Active Substance: VENLAFAXINE HYDROCHLORIDE
     Indication: HOT FLUSH

REACTIONS (5)
  - Musculoskeletal pain [Not Recovered/Not Resolved]
  - Muscle spasms [Recovered/Resolved]
  - Arthralgia [Unknown]
  - Pain in extremity [Not Recovered/Not Resolved]
  - Middle insomnia [Recovered/Resolved]

NARRATIVE: CASE EVENT DATE: 201406
